FAERS Safety Report 25051396 (Version 1)
Quarter: 2025Q1

REPORT INFORMATION
  Report Type: Spontaneous
  Country: US (occurrence: US)
  Receive Date: 20250307
  Receipt Date: 20250307
  Transmission Date: 20250408
  Serious: No
  Sender: EAGLE
  Company Number: US-EAGLE PHARMACEUTICALS, INC.-US-2024EAG000288

PATIENT
  Age: 27 Year
  Sex: Female

DRUGS (1)
  1. PEMFEXY [Suspect]
     Active Substance: PEMETREXED MONOHYDRATE
     Indication: Product used for unknown indication
     Route: 048
     Dates: start: 20241212, end: 20241212

REACTIONS (2)
  - Occupational exposure to product [Unknown]
  - Chemical burn of oral cavity [Not Recovered/Not Resolved]

NARRATIVE: CASE EVENT DATE: 20241212
